FAERS Safety Report 5653408-0 (Version None)
Quarter: 2008Q1

REPORT INFORMATION
  Report Type: 
  Country: None (occurrence: None)
  Receive Date: 20080306
  Receipt Date: 20080229
  Transmission Date: 20080703
  Serious: Yes (Other)
  Sender: FDA-Public Use
  Company Number: A0712746A

PATIENT
  Age: 85 Year
  Sex: Female

DRUGS (7)
  1. ADVAIR DISKUS 100/50 [Suspect]
     Indication: CHRONIC OBSTRUCTIVE PULMONARY DISEASE
     Dosage: 1PUFF TWICE PER DAY
     Route: 055
     Dates: start: 20080101, end: 20080201
  2. ADVAIR DISKUS 100/50 [Suspect]
     Dosage: 1PUFF TWICE PER DAY
     Route: 055
     Dates: start: 20080201, end: 20080201
  3. SPIRIVA [Suspect]
  4. CLARITIN [Concomitant]
  5. TYLENOL (CAPLET) [Concomitant]
  6. MUCINEX [Concomitant]
  7. ALBUTEROL [Concomitant]

REACTIONS (4)
  - CHOKING [None]
  - COUGH [None]
  - DRY EYE [None]
  - VISION BLURRED [None]
